FAERS Safety Report 13340468 (Version 1)
Quarter: 2017Q1

REPORT INFORMATION
  Report Type: Spontaneous
  Country: US (occurrence: US)
  Receive Date: 20170316
  Receipt Date: 20170316
  Transmission Date: 20170428
  Serious: No
  Sender: FDA-Public Use
  Company Number: US-PFIZER INC-2017113371

PATIENT
  Age: 70 Year
  Sex: Male

DRUGS (5)
  1. GABAPENTIN. [Suspect]
     Active Substance: GABAPENTIN
  2. ACARBOSE. [Suspect]
     Active Substance: ACARBOSE
  3. ENALAPRIL [Suspect]
     Active Substance: ENALAPRIL
  4. DIOVAN [Suspect]
     Active Substance: VALSARTAN
  5. METFORMIN HCL [Suspect]
     Active Substance: METFORMIN HYDROCHLORIDE

REACTIONS (1)
  - Drug hypersensitivity [Unknown]
